FAERS Safety Report 7356831 (Version 2)
Quarter: 2025Q1

REPORT INFORMATION
  Report Type: Spontaneous
  Country: JP (occurrence: NO)
  Receive Date: 20100416
  Receipt Date: 20250210
  Transmission Date: 20250409
  Serious: Yes (Congenital Anomaly, Other)
  Sender: ALEXION PHARMACEUTICALS
  Company Number: 2010SE16317

PATIENT

DRUGS (5)
  1. CANDESARTAN CILEXETIL [Suspect]
     Active Substance: CANDESARTAN CILEXETIL
     Dosage: 16 MILLIGRAM, QD
  2. PRAMIPEXOLE [Suspect]
     Active Substance: PRAMIPEXOLE
  3. AMITRIPTYLINE [Suspect]
     Active Substance: AMITRIPTYLINE
     Dosage: 25 MILLIGRAM, QD
  4. ZOLMITRIPTAN [Suspect]
     Active Substance: ZOLMITRIPTAN
  5. METOCLOPRAMIDE [Suspect]
     Active Substance: METOCLOPRAMIDE

REACTIONS (4)
  - Delayed foetal renal development [Unknown]
  - Renal aplasia [Unknown]
  - Pulmonary hypoplasia [Unknown]
  - Foetal exposure during pregnancy [Unknown]
